FAERS Safety Report 6723571-9 (Version None)
Quarter: 2010Q2

REPORT INFORMATION
  Report Type: 
  Country: None (occurrence: None)
  Receive Date: 20100513
  Receipt Date: 20100504
  Transmission Date: 20101027
  Serious: Yes (Hospitalization)
  Sender: FDA-Public Use
  Company Number: US-WYE-H14965110

PATIENT
  Sex: Female
  Weight: 63.56 kg

DRUGS (2)
  1. PRISTIQ [Suspect]
     Indication: DEPRESSION
     Route: 048
     Dates: start: 20090101, end: 20090101
  2. THYROID TAB [Concomitant]
     Dosage: UNKNOWN

REACTIONS (5)
  - AGITATION [None]
  - CONSTIPATION [None]
  - DRUG WITHDRAWAL SYNDROME [None]
  - INFLAMMATORY BOWEL DISEASE [None]
  - INSOMNIA [None]
